FAERS Safety Report 9803516 (Version 2)
Quarter: 2014Q1

REPORT INFORMATION
  Report Type: Spontaneous
  Country: US (occurrence: US)
  Receive Date: 20140108
  Receipt Date: 20140131
  Transmission Date: 20141002
  Serious: Yes (Hospitalization)
  Sender: FDA-Public Use
  Company Number: US-BAYER-2014-002732

PATIENT
  Age: 26 Year
  Sex: Female
  Weight: 43.08 kg

DRUGS (1)
  1. MIRENA [Suspect]
     Indication: CONTRACEPTION
     Dosage: 20 MCG/24HR, CONT
     Route: 015
     Dates: start: 20100423, end: 20120203

REACTIONS (7)
  - Uterine perforation [None]
  - Emotional distress [None]
  - Psychological trauma [None]
  - Pain [None]
  - Injury [None]
  - Hypertension [None]
  - Ovarian cyst [None]
